FAERS Safety Report 6166965-5 (Version None)
Quarter: 2009Q2

REPORT INFORMATION
  Report Type: 
  Country: None (occurrence: None)
  Receive Date: 20090424
  Receipt Date: 20090414
  Transmission Date: 20091009
  Serious: Yes (Other)
  Sender: FDA-Public Use
  Company Number: JP-PFIZER INC-2009181959

PATIENT

DRUGS (7)
  1. LIPITOR [Suspect]
     Indication: HYPERCHOLESTEROLAEMIA
     Dosage: 10 MG, 1X/DAY
     Route: 048
     Dates: start: 20070901, end: 20090301
  2. PROVERA [Concomitant]
     Dosage: UNK
     Route: 048
     Dates: start: 20080107
  3. PREMARIN [Concomitant]
     Dosage: UNK
     Route: 048
     Dates: start: 20080107
  4. PURSENNID [Concomitant]
     Dosage: UNK
     Route: 048
     Dates: start: 20051217
  5. YODEL [Concomitant]
     Dosage: UNK
     Route: 048
     Dates: start: 20060214
  6. TAKEPRON [Concomitant]
     Dosage: UNK
     Route: 048
     Dates: start: 20080107
  7. DEPAS [Concomitant]
     Dosage: UNK
     Route: 048
     Dates: start: 20050705

REACTIONS (1)
  - RHABDOMYOLYSIS [None]
